FAERS Safety Report 7387446-7 (Version None)
Quarter: 2011Q1

REPORT INFORMATION
  Report Type: 
  Country: None (occurrence: None)
  Receive Date: 20110331
  Receipt Date: 20110325
  Transmission Date: 20110831
  Serious: Yes (Hospitalization, Other)
  Sender: FDA-Public Use
  Company Number: BR-ELI_LILLY_AND_COMPANY-BR201103007475

PATIENT
  Sex: Male
  Weight: 71 kg

DRUGS (9)
  1. HUMALOG MIX 75/25 [Suspect]
     Dosage: UNK IU, EACH EVENING
     Route: 058
     Dates: start: 20040101
  2. ACETYLSALICYLIC ACID [Concomitant]
     Dosage: 100 MG, QD
     Route: 048
  3. HUMALOG MIX 75/25 [Suspect]
     Dosage: UNK, EACH EVENING
     Route: 058
     Dates: start: 20100101
  4. ARADOIS [Concomitant]
     Indication: CARDIAC DISORDER
     Dosage: 100 MG, EACH MORNING
     Route: 048
  5. HUMALOG MIX 75/25 [Suspect]
     Dosage: 23 IU, EACH MORNING
     Route: 058
     Dates: start: 20100101
  6. METFORMIN HCL [Concomitant]
     Indication: DIABETES MELLITUS
     Dosage: UNK, BID
     Route: 048
  7. LIPITOR [Concomitant]
     Indication: CARDIAC DISORDER
     Dosage: 40 MG, EACH EVENING
     Route: 048
  8. MANIDIPINE [Concomitant]
     Indication: CARDIAC DISORDER
     Dosage: 10 MG, EACH MORNING
     Route: 048
  9. HUMALOG MIX 75/25 [Suspect]
     Indication: TYPE 2 DIABETES MELLITUS
     Dosage: 23 IU, EACH MORNING
     Route: 058
     Dates: start: 20040101

REACTIONS (4)
  - INFARCTION [None]
  - HYPOGLYCAEMIA [None]
  - VASCULAR GRAFT [None]
  - HYPERGLYCAEMIA [None]
